FAERS Safety Report 9128778 (Version 1)
Quarter: 2013Q1

REPORT INFORMATION
  Report Type: Spontaneous
  Country: US (occurrence: US)
  Receive Date: 20130228
  Receipt Date: 20130228
  Transmission Date: 20140127
  Serious: No
  Sender: FDA-Public Use
  Company Number: US-ABBOTT-12P-163-1013393-00

PATIENT
  Sex: Male
  Weight: 74.91 kg

DRUGS (7)
  1. ANDROGEL [Suspect]
     Indication: BLOOD TESTOSTERONE DECREASED
     Route: 061
     Dates: start: 201112
  2. ANDROGEL [Suspect]
     Route: 061
     Dates: start: 201004, end: 201112
  3. ANDROGEL [Suspect]
     Indication: BLOOD TESTOSTERONE DECREASED
     Route: 061
     Dates: start: 201004, end: 201112
  4. LISINOPRIL [Concomitant]
     Indication: HYPERTENSION
  5. NORVASC [Concomitant]
     Indication: HYPERTENSION
  6. ATENOLOL [Concomitant]
     Indication: HYPERTENSION
  7. SINGULAIR [Concomitant]
     Indication: ASTHMA

REACTIONS (6)
  - Musculoskeletal pain [Not Recovered/Not Resolved]
  - Incorrect route of drug administration [Recovered/Resolved]
  - Blood testosterone decreased [Recovered/Resolved]
  - Blood testosterone decreased [Recovered/Resolved]
  - Incorrect dose administered [Recovered/Resolved]
  - Blood testosterone increased [Recovered/Resolved]
